FAERS Safety Report 19224578 (Version 1)
Quarter: 2021Q2

REPORT INFORMATION
  Report Type: Spontaneous
  Country: US (occurrence: US)
  Receive Date: 20210505
  Receipt Date: 20210505
  Transmission Date: 20210717
  Serious: No
  Sender: FDA-Public Use
  Company Number: US-ROCHE-2705961

PATIENT
  Age: 59 Year
  Sex: Female

DRUGS (1)
  1. ESBRIET [Suspect]
     Active Substance: PIRFENIDONE
     Indication: PRODUCT USED FOR UNKNOWN INDICATION
     Route: 048
     Dates: start: 20161026

REACTIONS (7)
  - Protein urine present [Unknown]
  - Dyspnoea [Unknown]
  - Musculoskeletal chest pain [Unknown]
  - Back pain [Unknown]
  - Decreased appetite [Unknown]
  - Weight decreased [Unknown]
  - Chromaturia [Unknown]

NARRATIVE: CASE EVENT DATE: 20161026
